FAERS Safety Report 16886316 (Version 1)
Quarter: 2019Q4

REPORT INFORMATION
  Report Type: Spontaneous
  Country: CN (occurrence: CN)
  Receive Date: 20191004
  Receipt Date: 20191004
  Transmission Date: 20200122
  Serious: Yes (Hospitalization)
  Sender: FDA-Public Use
  Company Number: CN-ASTRAZENECA-2019SF38962

PATIENT
  Age: 65 Year
  Sex: Female
  Weight: 64 kg

DRUGS (1)
  1. SEROQUEL [Suspect]
     Active Substance: QUETIAPINE FUMARATE
     Indication: ANXIETY DISORDER
     Route: 048
     Dates: start: 20190919, end: 20190920

REACTIONS (1)
  - Anxiety [Recovered/Resolved]

NARRATIVE: CASE EVENT DATE: 20190919
